FAERS Safety Report 23062815 (Version 9)
Quarter: 2025Q1

REPORT INFORMATION
  Report Type: Report from Study
  Country: ES (occurrence: ES)
  Receive Date: 20231013
  Receipt Date: 20250326
  Transmission Date: 20250409
  Serious: Yes (Hospitalization, Other)
  Sender: TAKEDA
  Company Number: ES-TAKEDA-2023TUS098436

PATIENT
  Age: 4 Year
  Sex: Male

DRUGS (19)
  1. TEDUGLUTIDE [Suspect]
     Active Substance: TEDUGLUTIDE
     Indication: Short-bowel syndrome
     Dosage: 0.35 MILLIGRAM, QD
     Dates: start: 20201119, end: 20210729
  2. TEDUGLUTIDE [Suspect]
     Active Substance: TEDUGLUTIDE
     Dosage: 0.35 MILLIGRAM, QD
     Dates: start: 20220810, end: 20230731
  3. TEDUGLUTIDE [Suspect]
     Active Substance: TEDUGLUTIDE
     Dosage: 0.8 MILLIGRAM, QD
     Dates: start: 20230731, end: 20231012
  4. TEDUGLUTIDE [Suspect]
     Active Substance: TEDUGLUTIDE
  5. METRONIDAZOLE [Concomitant]
     Active Substance: METRONIDAZOLE
     Indication: Metabolic acidosis
     Dosage: 112.5 MILLIGRAM, BID
     Dates: start: 20230905, end: 20230909
  6. TEICOPLANIN [Concomitant]
     Active Substance: TEICOPLANIN
     Indication: Viral infection
     Dosage: 140 MILLIGRAM, QD
     Dates: start: 20230621, end: 20230625
  7. CEFOTAXIME [Concomitant]
     Active Substance: CEFOTAXIME SODIUM
     Indication: Viral infection
     Dosage: 900 MILLIGRAM, Q8HR
     Dates: start: 20230621, end: 20230625
  8. CEFOTAXIME [Concomitant]
     Active Substance: CEFOTAXIME SODIUM
     Indication: Bacteraemia
     Dosage: 200 MILLIGRAM/KILOGRAM, QD
     Dates: start: 20240923, end: 20240924
  9. VITAMIN D3 [Concomitant]
     Active Substance: CHOLECALCIFEROL
     Indication: Lactic acidosis
     Dosage: 3000 INTERNATIONAL UNIT, QD
     Dates: start: 20230221
  10. LEVOTHYROXINE [Concomitant]
     Active Substance: LEVOTHYROXINE
     Indication: Hypothyroidism
     Dosage: 100 MILLIGRAM, QD
     Dates: start: 20231107
  11. URSODIOL [Concomitant]
     Active Substance: URSODIOL
     Indication: Cholestasis
     Dosage: 100 MILLIGRAM, TID
     Dates: start: 20231107
  12. FLAGYL [Concomitant]
     Active Substance: METRONIDAZOLE\METRONIDAZOLE HYDROCHLORIDE
     Indication: Metabolic acidosis
     Dosage: 140 MILLIGRAM, TID
     Dates: start: 20240128, end: 20240207
  13. FUROSEMIDE [Concomitant]
     Active Substance: FUROSEMIDE
     Indication: Hyponatraemia
     Dates: start: 20240124, end: 20240125
  14. FUROSEMIDE [Concomitant]
     Active Substance: FUROSEMIDE
     Dosage: 7.25 MILLIGRAM, TID
     Dates: start: 20240125, end: 20240127
  15. DALBAVANCIN [Concomitant]
     Active Substance: DALBAVANCIN
     Indication: Central venous catheterisation
     Dates: start: 20240306, end: 20240315
  16. DALBAVANCIN [Concomitant]
     Active Substance: DALBAVANCIN
     Indication: Bacteraemia
     Dosage: 300 MILLIGRAM, Q2WEEKS
     Dates: start: 20241008, end: 20241105
  17. CLOXACILLIN [Concomitant]
     Active Substance: CLOXACILLIN
     Indication: Central venous catheterisation
     Dates: start: 20240214, end: 20240306
  18. CEFAZOLIN [Concomitant]
     Active Substance: CEFAZOLIN
     Indication: Bacteraemia
     Dosage: 100 MILLIGRAM/KILOGRAM, QD
     Dates: start: 20240925, end: 20241007
  19. DAPTOMYCIN [Concomitant]
     Active Substance: DAPTOMYCIN
     Indication: Bacteraemia
     Dosage: 10 MILLIGRAM/KILOGRAM, QD
     Dates: start: 20240923, end: 20240925

REACTIONS (12)
  - Lactic acidosis [Recovered/Resolved]
  - Device breakage [Recovered/Resolved]
  - Device related sepsis [Recovered/Resolved]
  - Thrombosis [Recovered/Resolved]
  - Inappropriate antidiuretic hormone secretion [Not Recovered/Not Resolved]
  - Hepatosplenomegaly [Recovered/Resolved]
  - Hypertransaminasaemia [Not Recovered/Not Resolved]
  - Lung consolidation [Not Recovered/Not Resolved]
  - Herpes simplex [Recovered/Resolved]
  - Stomatitis [Recovered/Resolved]
  - Hypoprothrombinaemia [Recovered/Resolved]
  - Vomiting [Recovered/Resolved]

NARRATIVE: CASE EVENT DATE: 20230903
